FAERS Safety Report 7121864-7 (Version None)
Quarter: 2010Q4

REPORT INFORMATION
  Report Type: 
  Country: None (occurrence: None)
  Receive Date: 20101124
  Receipt Date: 20101110
  Transmission Date: 20110411
  Serious: Yes (Other)
  Sender: FDA-Public Use
  Company Number: JP-ROCHE-742119

PATIENT
  Sex: Male
  Weight: 2.9 kg

DRUGS (2)
  1. OSELTAMIVIR [Suspect]
     Indication: INFLUENZA
     Route: 064
     Dates: start: 20091129, end: 20091203
  2. VACCINE NOS [Concomitant]
     Dosage: DRUG NAME: SEASONAL FLU VACCINATION

REACTIONS (2)
  - DRUG EXPOSURE DURING PREGNANCY [None]
  - NEONATAL INFECTION [None]
